FAERS Safety Report 7435918-9 (Version None)
Quarter: 2011Q2

REPORT INFORMATION
  Report Type: 
  Country: None (occurrence: None)
  Receive Date: 20110425
  Receipt Date: 20110412
  Transmission Date: 20111010
  Serious: Yes (Hospitalization)
  Sender: FDA-Public Use
  Company Number: US-JNJFOC-20110409166

PATIENT
  Age: 16 Year
  Sex: Male

DRUGS (6)
  1. ARIPIPRAZOLE [Suspect]
     Indication: HALLUCINATION
     Route: 065
  2. ARIPIPRAZOLE [Suspect]
     Indication: AGITATION
     Route: 065
  3. HALOPERIDOL [Suspect]
     Indication: HALLUCINATION
     Route: 065
  4. HALOPERIDOL [Suspect]
     Indication: AGITATION
     Route: 065
  5. HALOPERIDOL [Suspect]
     Indication: ABNORMAL BEHAVIOUR
     Route: 065
  6. ARIPIPRAZOLE [Suspect]
     Indication: ABNORMAL BEHAVIOUR
     Route: 065

REACTIONS (6)
  - BRADYKINESIA [None]
  - DYSTONIA [None]
  - MUSCLE RIGIDITY [None]
  - EYE DISORDER [None]
  - MASKED FACIES [None]
  - DROOLING [None]
